FAERS Safety Report 11086561 (Version 1)
Quarter: 2015Q2

REPORT INFORMATION
  Report Type: Spontaneous
  Country: CN (occurrence: CN)
  Receive Date: 20150504
  Receipt Date: 20150504
  Transmission Date: 20150821
  Serious: Yes (Life-Threatening, Hospitalization)
  Sender: FDA-Public Use
  Company Number: CN-ALKEM-000979

PATIENT
  Age: 28 Year
  Sex: Female

DRUGS (1)
  1. AMLODIPINE [Suspect]
     Active Substance: AMLODIPINE BESYLATE
     Dosage: STRENGTH: 5MG
     Route: 048

REACTIONS (13)
  - Peripheral coldness [Recovered/Resolved]
  - Oedema peripheral [Recovered/Resolved]
  - Pulmonary oedema [Recovered/Resolved]
  - Metabolic acidosis [Recovered/Resolved]
  - Respiratory failure [Recovered/Resolved]
  - Lung infiltration [Recovered/Resolved]
  - Loss of consciousness [Recovered/Resolved]
  - Shock [Recovering/Resolving]
  - Hypocalcaemia [Recovered/Resolved]
  - Overdose [Unknown]
  - Palpitations [Recovering/Resolving]
  - Dizziness [Recovered/Resolved]
  - Suicide attempt [Unknown]
